FAERS Safety Report 26191089 (Version 1)
Quarter: 2025Q4

REPORT INFORMATION
  Report Type: Spontaneous
  Country: US (occurrence: US)
  Receive Date: 20251223
  Receipt Date: 20251223
  Transmission Date: 20260117
  Serious: Yes (Hospitalization)
  Sender: MYLAN
  Company Number: US-MYLANLABS-2025M1108077

PATIENT
  Age: 7 Decade
  Sex: Male

DRUGS (24)
  1. LEUCOVORIN [Suspect]
     Active Substance: LEUCOVORIN\LEUCOVORIN CALCIUM
     Indication: Colon cancer metastatic
     Dosage: UNK, FOLFOX REGIMEN, 5 CYCLES
  2. LEUCOVORIN [Suspect]
     Active Substance: LEUCOVORIN\LEUCOVORIN CALCIUM
     Dosage: UNK, FOLFOX REGIMEN, 5 CYCLES
  3. LEUCOVORIN [Suspect]
     Active Substance: LEUCOVORIN\LEUCOVORIN CALCIUM
     Dosage: UNK, FOLFOX REGIMEN, 5 CYCLES
     Route: 065
  4. LEUCOVORIN [Suspect]
     Active Substance: LEUCOVORIN\LEUCOVORIN CALCIUM
     Dosage: UNK, FOLFOX REGIMEN, 5 CYCLES
     Route: 065
  5. LEUCOVORIN [Suspect]
     Active Substance: LEUCOVORIN\LEUCOVORIN CALCIUM
     Dosage: UNK, DOSE REDUCTIONS, FOLFOX REGIMEN, 5 CYCLES
  6. LEUCOVORIN [Suspect]
     Active Substance: LEUCOVORIN\LEUCOVORIN CALCIUM
     Dosage: UNK, DOSE REDUCTIONS, FOLFOX REGIMEN, 5 CYCLES
  7. LEUCOVORIN [Suspect]
     Active Substance: LEUCOVORIN\LEUCOVORIN CALCIUM
     Dosage: UNK, DOSE REDUCTIONS, FOLFOX REGIMEN, 5 CYCLES
     Route: 065
  8. LEUCOVORIN [Suspect]
     Active Substance: LEUCOVORIN\LEUCOVORIN CALCIUM
     Dosage: UNK, DOSE REDUCTIONS, FOLFOX REGIMEN, 5 CYCLES
     Route: 065
  9. OXALIPLATIN [Suspect]
     Active Substance: OXALIPLATIN
     Indication: Colon cancer metastatic
     Dosage: UNK, FOLFOX REGIMEN, 5 CYCLES
  10. OXALIPLATIN [Suspect]
     Active Substance: OXALIPLATIN
     Dosage: UNK, FOLFOX REGIMEN, 5 CYCLES
  11. OXALIPLATIN [Suspect]
     Active Substance: OXALIPLATIN
     Dosage: UNK, FOLFOX REGIMEN, 5 CYCLES
     Route: 065
  12. OXALIPLATIN [Suspect]
     Active Substance: OXALIPLATIN
     Dosage: UNK, FOLFOX REGIMEN, 5 CYCLES
     Route: 065
  13. OXALIPLATIN [Suspect]
     Active Substance: OXALIPLATIN
     Dosage: UNK, DOSE REDUCTIONS, FOLFOX REGIMEN, 5 CYCLES
  14. OXALIPLATIN [Suspect]
     Active Substance: OXALIPLATIN
     Dosage: UNK, DOSE REDUCTIONS, FOLFOX REGIMEN, 5 CYCLES
  15. OXALIPLATIN [Suspect]
     Active Substance: OXALIPLATIN
     Dosage: UNK, DOSE REDUCTIONS, FOLFOX REGIMEN, 5 CYCLES
     Route: 065
  16. OXALIPLATIN [Suspect]
     Active Substance: OXALIPLATIN
     Dosage: UNK, DOSE REDUCTIONS, FOLFOX REGIMEN, 5 CYCLES
     Route: 065
  17. FLUOROURACIL [Suspect]
     Active Substance: FLUOROURACIL
     Indication: Colon cancer metastatic
     Dosage: UNK, FOLFOX REGIMEN, 5 CYCLES
  18. FLUOROURACIL [Suspect]
     Active Substance: FLUOROURACIL
     Dosage: UNK, FOLFOX REGIMEN, 5 CYCLES
  19. FLUOROURACIL [Suspect]
     Active Substance: FLUOROURACIL
     Dosage: UNK, FOLFOX REGIMEN, 5 CYCLES
     Route: 065
  20. FLUOROURACIL [Suspect]
     Active Substance: FLUOROURACIL
     Dosage: UNK, FOLFOX REGIMEN, 5 CYCLES
     Route: 065
  21. FLUOROURACIL [Suspect]
     Active Substance: FLUOROURACIL
     Dosage: UNK, DOSE REDUCTIONS, FOLFOX REGIMEN, 5 CYCLES
  22. FLUOROURACIL [Suspect]
     Active Substance: FLUOROURACIL
     Dosage: UNK, DOSE REDUCTIONS, FOLFOX REGIMEN, 5 CYCLES
  23. FLUOROURACIL [Suspect]
     Active Substance: FLUOROURACIL
     Dosage: UNK, DOSE REDUCTIONS, FOLFOX REGIMEN, 5 CYCLES
     Route: 065
  24. FLUOROURACIL [Suspect]
     Active Substance: FLUOROURACIL
     Dosage: UNK, DOSE REDUCTIONS, FOLFOX REGIMEN, 5 CYCLES
     Route: 065

REACTIONS (3)
  - Neutropenia [Unknown]
  - Pneumonia [Unknown]
  - Drug intolerance [Unknown]
